FAERS Safety Report 5310933-X (Version None)
Quarter: 2007Q2

REPORT INFORMATION
  Report Type: 
  Country: None (occurrence: None)
  Receive Date: 20070426
  Receipt Date: 20070426
  Transmission Date: 20071010
  Serious: Yes (Other)
  Sender: FDA-Public Use
  Company Number: None

PATIENT
  Age: 75 Year
  Sex: Male
  Weight: 93.2 kg

DRUGS (12)
  1. CIPROFLOXACIN [Suspect]
     Indication: URINARY TRACT INFECTION
     Dosage: 500MG PO Q 12 HOURS
     Route: 048
     Dates: start: 20061129
  2. METOPROLOL TAB [Concomitant]
  3. HYDROCORTISONE/PRAMOXINE [Concomitant]
  4. OMEPRAZOLE [Concomitant]
  5. EPOETIN ALFA, RECOMBINANT [Concomitant]
  6. FLUCONAZOLE [Concomitant]
  7. PEGFILGRASTIM [Concomitant]
  8. GABAPENTIN [Concomitant]
  9. MORPHINE SULFATE CR TAB [Concomitant]
  10. ONDANSETRON HCL [Concomitant]
  11. OXYCODONE / ACETAMINOPHEN [Concomitant]
  12. TERAZOSIN HCL [Concomitant]

REACTIONS (3)
  - DYSPHAGIA [None]
  - ERYTHEMA [None]
  - PRURITUS [None]
